FAERS Safety Report 22270783 (Version 1)
Quarter: 2023Q2

REPORT INFORMATION
  Report Type: Spontaneous
  Country: US (occurrence: None)
  Receive Date: 20230428
  Receipt Date: 20230428
  Transmission Date: 20230722
  Serious: No
  Sender: FDA-Public Use
  Company Number: None

PATIENT
  Age: 73 Year
  Sex: Female
  Weight: 66.22 kg

DRUGS (10)
  1. LENALIDOMIDE [Suspect]
     Active Substance: LENALIDOMIDE
     Indication: Plasma cell myeloma
     Dosage: OTHER FREQUENCY : 2W, 1W OFF;?
     Route: 048
  2. ACYCLOVIR [Concomitant]
     Active Substance: ACYCLOVIR
  3. ADVIL [Concomitant]
     Active Substance: IBUPROFEN
  4. ASPIRIN [Concomitant]
     Active Substance: ASPIRIN
  5. DAILY MULTIPLE VITAMINS [Concomitant]
  6. LEVOCETIRIZINE DIHYDROCHLORIDE [Concomitant]
     Active Substance: LEVOCETIRIZINE DIHYDROCHLORIDE
  7. LISINOPRIL [Concomitant]
     Active Substance: LISINOPRIL
  8. MELOXICAM [Concomitant]
     Active Substance: MELOXICAM
  9. ONDANSETRON [Concomitant]
     Active Substance: ONDANSETRON
  10. TRAMADOL [Concomitant]
     Active Substance: TRAMADOL

REACTIONS (6)
  - White blood cell count increased [None]
  - Feeling jittery [None]
  - Dizziness [None]
  - Asthenia [None]
  - Urinary tract infection [None]
  - White blood cells urine positive [None]
